FAERS Safety Report 8513285-7 (Version None)
Quarter: 2012Q3

REPORT INFORMATION
  Report Type: 
  Country: None (occurrence: None)
  Receive Date: 20120716
  Receipt Date: 20120711
  Transmission Date: 20120928
  Serious: Yes (Hospitalization)
  Sender: FDA-Public Use
  Company Number: DE-ROCHE-1087813

PATIENT
  Age: 71 Year
  Sex: Female
  Weight: 65 kg

DRUGS (3)
  1. ACTEMRA [Suspect]
     Indication: RHEUMATOID ARTHRITIS
     Route: 042
     Dates: start: 20111220
  2. PREDNISOLONE [Concomitant]
     Route: 048
     Dates: start: 20110701
  3. ALENDRONATE SODIUM [Concomitant]
     Route: 048
     Dates: start: 20111204

REACTIONS (2)
  - DIVERTICULUM INTESTINAL [None]
  - HYPERCHOLESTEROLAEMIA [None]
